FAERS Safety Report 7817416-3 (Version None)
Quarter: 2011Q4

REPORT INFORMATION
  Report Type: 
  Country: None (occurrence: None)
  Receive Date: 20111017
  Receipt Date: 20111007
  Transmission Date: 20120403
  Serious: Yes (Death)
  Sender: FDA-Public Use
  Company Number: CA-ROCHE-1003754

PATIENT
  Sex: Male

DRUGS (3)
  1. HYDROCHLOROTHIAZIDE [Concomitant]
     Indication: HYPERTENSION
  2. CRESTOR [Concomitant]
     Indication: BLOOD CHOLESTEROL
  3. XELODA [Suspect]
     Indication: PANCREATIC CARCINOMA
     Dosage: DAILY
     Route: 048
     Dates: start: 20110501, end: 20110101

REACTIONS (1)
  - DEATH [None]
